FAERS Safety Report 6755899-0 (Version None)
Quarter: 2010Q2

REPORT INFORMATION
  Report Type: 
  Country: None (occurrence: None)
  Receive Date: 20100603
  Receipt Date: 20100603
  Transmission Date: 20101027
  Serious: Yes (Hospitalization, Other)
  Sender: FDA-Public Use
  Company Number: None

PATIENT
  Age: 45 Year
  Sex: Male
  Weight: 88.4514 kg

DRUGS (1)
  1. SEROQUEL [Suspect]
     Indication: SLEEP DISORDER
     Dosage: 2 BEDTIME PO
     Route: 048

REACTIONS (3)
  - DIABETES MELLITUS [None]
  - MOOD SWINGS [None]
  - WEIGHT INCREASED [None]
